FAERS Safety Report 6245009-0 (Version None)
Quarter: 2009Q2

REPORT INFORMATION
  Report Type: 
  Country: None (occurrence: None)
  Receive Date: 20090625
  Receipt Date: 20090610
  Transmission Date: 20091009
  Serious: Yes (Other)
  Sender: FDA-Public Use
  Company Number: US-JNJFOC-20090606811

PATIENT
  Age: 54 Year
  Sex: Male

DRUGS (3)
  1. RISPERIDONE [Suspect]
     Indication: PSYCHOTIC DISORDER
     Dosage: EVERY OTHER WEEK
     Route: 030
  2. HALOPERIDOL [Suspect]
     Indication: PSYCHOTIC DISORDER
     Route: 065
  3. DIVALPROEX SODIUM [Suspect]
     Indication: PSYCHOTIC DISORDER
     Route: 065

REACTIONS (4)
  - ERECTILE DYSFUNCTION [None]
  - PARKINSONISM [None]
  - SCHIZOPHRENIA [None]
  - TARDIVE DYSKINESIA [None]
